FAERS Safety Report 8015478-4 (Version None)
Quarter: 2011Q4

REPORT INFORMATION
  Report Type: 
  Country: None (occurrence: None)
  Receive Date: 20111230
  Receipt Date: 20111227
  Transmission Date: 20120403
  Serious: Yes (Hospitalization)
  Sender: FDA-Public Use
  Company Number: JP-BAYER-201012853BYL

PATIENT
  Age: 68 Year
  Sex: Male

DRUGS (2)
  1. NEXAVAR [Suspect]
     Indication: HEPATIC NEOPLASM MALIGNANT
     Dosage: 600 MG (DAILY DOSE), , ORAL
     Route: 048
     Dates: start: 20100524
  2. NEXAVAR [Suspect]
     Dosage: DOSE PER TREATMENT DAY: 400 MG
     Route: 048
     Dates: start: 20110401

REACTIONS (2)
  - CEREBRAL INFARCTION [None]
  - PALMAR-PLANTAR ERYTHRODYSAESTHESIA SYNDROME [None]
